FAERS Safety Report 6467463-1 (Version None)
Quarter: 2009Q4

REPORT INFORMATION
  Report Type: 
  Country: None (occurrence: None)
  Receive Date: 20091202
  Receipt Date: 20091124
  Transmission Date: 20100525
  Serious: Yes (Other)
  Sender: FDA-Public Use
  Company Number: GXKR2009GB12760

PATIENT
  Sex: Female

DRUGS (2)
  1. WARFARIN (NGX) [Suspect]
     Dosage: UNK
  2. ESTRIOL [Interacting]
     Indication: HORMONE REPLACEMENT THERAPY
     Dosage: 1 DF, QW2
     Route: 067

REACTIONS (3)
  - DRUG INTERACTION [None]
  - DRUG LEVEL DECREASED [None]
  - INTERNATIONAL NORMALISED RATIO DECREASED [None]
